FAERS Safety Report 22226334 (Version 1)
Quarter: 2023Q2

REPORT INFORMATION
  Report Type: Spontaneous
  Country: US (occurrence: US)
  Receive Date: 20230419
  Receipt Date: 20230419
  Transmission Date: 20230721
  Serious: Yes (Hospitalization)
  Sender: FDA-Public Use
  Company Number: US-drreddys-LIT/USA/23/0163693

PATIENT
  Age: 67 Year
  Sex: Male

DRUGS (8)
  1. TACROLIMUS [Suspect]
     Active Substance: TACROLIMUS
     Indication: Allogenic stem cell transplantation
  2. TACROLIMUS [Suspect]
     Active Substance: TACROLIMUS
  3. PREDNISONE [Suspect]
     Active Substance: PREDNISONE
     Indication: Product used for unknown indication
  4. PREDNISONE [Suspect]
     Active Substance: PREDNISONE
  5. PREDNISONE [Suspect]
     Active Substance: PREDNISONE
  6. RUXOLITINIB [Suspect]
     Active Substance: RUXOLITINIB
     Indication: Product used for unknown indication
  7. RUXOLITINIB [Suspect]
     Active Substance: RUXOLITINIB
     Dosage: TAPERED OVER 4 WEEKS
  8. MYCOPHENOLATE MOFETIL [Suspect]
     Active Substance: MYCOPHENOLATE MOFETIL
     Indication: Product used for unknown indication

REACTIONS (3)
  - Transient acantholytic dermatosis [Unknown]
  - Graft versus host disease in skin [Unknown]
  - Product use in unapproved indication [Unknown]
